FAERS Safety Report 13034170 (Version 1)
Quarter: 2016Q4

REPORT INFORMATION
  Report Type: Spontaneous
  Country: US (occurrence: US)
  Receive Date: 20161215
  Receipt Date: 20161215
  Transmission Date: 20170207
  Serious: Yes (Other)
  Sender: FDA-Public Use
  Company Number: None

PATIENT
  Age: 54 Year
  Sex: Female
  Weight: 77 kg

DRUGS (14)
  1. CALCIUM ACETATE (PHOS LO) [Concomitant]
  2. OMEGA-3 FATTY ACIDS/FISH OIL [Concomitant]
  3. ZOCOR [Concomitant]
     Active Substance: SIMVASTATIN
  4. ALBUMIN [Suspect]
     Active Substance: ALBUMIN HUMAN
     Indication: RENAL TRANSPLANT
     Dosage: ?          OTHER FREQUENCY:ONCE;?
     Route: 042
     Dates: start: 20161206, end: 20161206
  5. CHOLECALCIFEROL [Concomitant]
     Active Substance: CHOLECALCIFEROL
  6. INSULIN NPH HUMAN (HUMULIN N) [Concomitant]
  7. UBIDECARENONE (COENZYME Q10) [Concomitant]
  8. PENTOXIFYLLINE (TRENTAL) [Concomitant]
  9. LOPRESSOR [Concomitant]
     Active Substance: METOPROLOL TARTRATE
  10. VITAMIN D3 [Concomitant]
     Active Substance: CHOLECALCIFEROL
  11. ASPIRIN (ECOTRIN) [Concomitant]
  12. SEVELAMER CARBONATE (RENVELA) [Concomitant]
  13. LISINOPRIL (PRINIVIL, ZESTRIL) [Concomitant]
  14. NIFEDIPINE (ADALAT CC) [Concomitant]

REACTIONS (4)
  - Vomiting [None]
  - Toxicity to various agents [None]
  - Diarrhoea [None]
  - Nausea [None]

NARRATIVE: CASE EVENT DATE: 20161206
